FAERS Safety Report 18001136 (Version 1)
Quarter: 2020Q3

REPORT INFORMATION
  Report Type: Report from Study
  Country: US (occurrence: US)
  Receive Date: 20200709
  Receipt Date: 20200709
  Transmission Date: 20201103
  Serious: Yes (Hospitalization)
  Sender: FDA-Public Use
  Company Number: US-PFIZER INC-2020260222

PATIENT
  Age: 28 Year
  Sex: Male
  Weight: 88.1 kg

DRUGS (14)
  1. VINCRISTINE SULFATE. [Suspect]
     Active Substance: VINCRISTINE SULFATE
     Indication: B-CELL TYPE ACUTE LEUKAEMIA
     Dosage: 0.4 MG/M2/DAY, DAYS 1?4 Q28 DAYS, CIV
     Route: 042
     Dates: start: 20200617, end: 20200620
  2. MELATONIN [Concomitant]
     Active Substance: MELATONIN
     Dosage: 3?6 MG QHS PRN
     Route: 048
  3. ACYCLOVIR [ACICLOVIR] [Concomitant]
     Active Substance: ACYCLOVIR
     Dosage: 800 MG, BID
     Route: 048
  4. ETOPOSIDE. [Suspect]
     Active Substance: ETOPOSIDE
     Indication: B-CELL TYPE ACUTE LEUKAEMIA
     Dosage: 50 MG/M2/DAY, DAYS 1?4 Q28 DAYS, CIV
     Route: 042
     Dates: start: 20200617, end: 20200620
  5. FLUCONAZOLE. [Concomitant]
     Active Substance: FLUCONAZOLE
     Dosage: 200 MG, DAILY
     Route: 048
  6. URSODIOL. [Concomitant]
     Active Substance: URSODIOL
     Dosage: 500 MG, PO BID
     Route: 048
  7. INOTUZUMAB OZOGAMICIN [Suspect]
     Active Substance: INOTUZUMAB OZOGAMICIN
     Indication: B-CELL TYPE ACUTE LEUKAEMIA
     Dosage: 0.3 MG/M2, DAY 8 AND 15
     Route: 042
     Dates: start: 20200623, end: 20200630
  8. DOXORUBICIN HCL [Suspect]
     Active Substance: DOXORUBICIN HYDROCHLORIDE
     Indication: B-CELL TYPE ACUTE LEUKAEMIA
     Dosage: 10 MG/M2/DAY, DAYS 1?4 Q28 DAYS, CIV
     Route: 042
     Dates: start: 20200617, end: 20200620
  9. CYCLOPHOSPHAMIDE. [Suspect]
     Active Substance: CYCLOPHOSPHAMIDE
     Indication: B-CELL TYPE ACUTE LEUKAEMIA
     Dosage: 750 MG/M2, DAY 5 Q28 DAYS
     Route: 042
     Dates: start: 20200621, end: 20200621
  10. POLYETHYLENE GLYCOL 3350. [Concomitant]
     Active Substance: POLYETHYLENE GLYCOL 3350
     Dosage: 17 G, DAILY
     Route: 048
  11. VANCOMYCIN [Concomitant]
     Active Substance: VANCOMYCIN
     Dosage: 1.25 G IVPB Q12 HOURS (NON STD)
     Route: 042
  12. ACETAMINOPHEN. [Concomitant]
     Active Substance: ACETAMINOPHEN
     Dosage: 650 MG, Q6 HOURS PRN
     Route: 048
  13. CEFEPIME [Concomitant]
     Active Substance: CEFEPIME HYDROCHLORIDE
     Dosage: 2 G, IVPB Q8 HOURS (NON STD)
     Route: 042
  14. CHOLECALCIFEROL [Concomitant]
     Active Substance: CHOLECALCIFEROL
     Dosage: 1000 UNITS, DAILY
     Route: 048

REACTIONS (1)
  - Febrile neutropenia [Recovering/Resolving]

NARRATIVE: CASE EVENT DATE: 20200705
